FAERS Safety Report 24449710 (Version 2)
Quarter: 2024Q4

REPORT INFORMATION
  Report Type: Report from Study
  Country: US (occurrence: US)
  Receive Date: 20241017
  Receipt Date: 20241023
  Transmission Date: 20250115
  Serious: Yes (Congenital Anomaly, Other)
  Sender: ABBVIE
  Company Number: US-ABBVIE-5963067

PATIENT
  Sex: Female
  Weight: 68.038 kg

DRUGS (9)
  1. SKYRIZI [Suspect]
     Active Substance: RISANKIZUMAB-RZAA
     Indication: Psoriasis
     Dosage: FORM STRENGTH 150 MILLIGRAM, ?START DATE TEXT: MORE THAN A YEAR AGO
     Route: 058
  2. SKYRIZI [Suspect]
     Active Substance: RISANKIZUMAB-RZAA
     Indication: Psoriatic arthropathy
  3. MYRBETRIQ [Concomitant]
     Active Substance: MIRABEGRON
     Indication: Bladder disorder
  4. AZELASTINE [Concomitant]
     Active Substance: AZELASTINE
     Indication: Multiple allergies
     Dosage: FORM STRENGTH 0.1 PERCENT
  5. LOSARTAN POTASSIUM [Concomitant]
     Active Substance: LOSARTAN POTASSIUM
     Indication: Hypertension
     Dosage: FORM STRENGTH 100 MILLIGRAM
  6. LAMOTRIGINE [Concomitant]
     Active Substance: LAMOTRIGINE
     Indication: Product used for unknown indication
     Dosage: FORM STRENGTH 15 MILLIGRAM
  7. SYSTANE (HYPROMELLOSE 2910 (4000 MPA.S)) [Concomitant]
     Active Substance: HYPROMELLOSE 2910 (4000 MPA.S)
     Indication: Product used for unknown indication
     Route: 047
  8. AMLODIPINE [Concomitant]
     Active Substance: AMLODIPINE BESYLATE
     Indication: Hypertension
     Dosage: FORM STRENGTH 5 MILLIGRAM, ?ONCE IN THE MORNING
  9. ZYRTEC [Concomitant]
     Active Substance: CETIRIZINE HYDROCHLORIDE
     Indication: Multiple allergies

REACTIONS (4)
  - Corneal dystrophy [Recovering/Resolving]
  - Eye discharge [Recovering/Resolving]
  - Corneal disorder [Recovering/Resolving]
  - Vision blurred [Recovering/Resolving]
